FAERS Safety Report 4706902-0 (Version None)
Quarter: 2005Q2

REPORT INFORMATION
  Report Type: 
  Country: None (occurrence: None)
  Receive Date: 20050630
  Receipt Date: 20050620
  Transmission Date: 20051028
  Serious: Yes (Hospitalization)
  Sender: FDA-Public Use
  Company Number: MK200506-0277-1

PATIENT
  Age: 83 Year
  Sex: Female

DRUGS (14)
  1. TRAMADOL HYDROCHLORIDE TABS 50 MG [Suspect]
     Indication: PAIN
     Dosage: 50 MG, TID
  2. ENOXAPARIN SODIUM [Concomitant]
  3. CEPHUROXIM [Concomitant]
  4. ACETAMINOPHEN [Concomitant]
  5. PICOSULFATE [Concomitant]
  6. ZOPICLONE [Concomitant]
  7. RAMIPRIL [Concomitant]
  8. ASPIRIN [Concomitant]
  9. BESAFIBRATE [Concomitant]
  10. BISOPROLOL [Concomitant]
  11. FUROSEMIDE [Concomitant]
  12. TIOTROPIUMBROMIDE [Concomitant]
  13. SALMETEROL [Concomitant]
  14. FLUTICASONE PROPIONATE [Concomitant]

REACTIONS (4)
  - LARYNGEAL OEDEMA [None]
  - LOCALISED OEDEMA [None]
  - OEDEMA MOUTH [None]
  - PHARYNGEAL OEDEMA [None]
